FAERS Safety Report 23488356 (Version 2)
Quarter: 2024Q1

REPORT INFORMATION
  Report Type: Report from Study
  Country: US (occurrence: US)
  Receive Date: 20240206
  Receipt Date: 20240212
  Transmission Date: 20240410
  Serious: No
  Sender: FDA-Public Use
  Company Number: US-SA-SAC20240131000047

PATIENT
  Age: 62 Year
  Sex: Female

DRUGS (1)
  1. DUPILUMAB [Suspect]
     Active Substance: DUPILUMAB
     Indication: Nasal polyps
     Dosage: 300 MG, QOW
     Route: 058
     Dates: start: 20240116, end: 202401

REACTIONS (14)
  - Herpes zoster [Unknown]
  - Injection site pain [Unknown]
  - Paraesthesia [Unknown]
  - Hypoaesthesia [Unknown]
  - Chest discomfort [Unknown]
  - Dyspnoea [Unknown]
  - Bronchitis [Unknown]
  - Muscle strain [Unknown]
  - Scab [Unknown]
  - Skin depigmentation [Unknown]
  - Skin swelling [Unknown]
  - Erythema [Unknown]
  - Oral herpes [Unknown]
  - Rash [Unknown]

NARRATIVE: CASE EVENT DATE: 20240101
